FAERS Safety Report 16314236 (Version 1)
Quarter: 2019Q2

REPORT INFORMATION
  Report Type: Spontaneous
  Country: US (occurrence: US)
  Receive Date: 20190410
  Receipt Date: 20190410
  Transmission Date: 20190711
  Serious: No
  Sender: FDA-Public Use
  Company Number: None

PATIENT
  Age: 1 Day
  Sex: Male

DRUGS (1)
  1. VITAMIN K [Suspect]
     Active Substance: PHYTONADIONE
     Dates: start: 20170628

REACTIONS (7)
  - Vomiting [None]
  - Inflammation [None]
  - Haematochezia [None]
  - Mucous stools [None]
  - Jaundice [None]
  - Inflammatory marker increased [None]
  - Poor feeding infant [None]

NARRATIVE: CASE EVENT DATE: 20170628
